FAERS Safety Report 11051661 (Version 1)
Quarter: 2015Q2

REPORT INFORMATION
  Report Type: Spontaneous
  Country: US (occurrence: None)
  Receive Date: 20150420
  Receipt Date: 20150420
  Transmission Date: 20150821
  Serious: Yes (Other)
  Sender: FDA-Public Use
  Company Number: None

PATIENT
  Age: 60 Year
  Sex: Female
  Weight: 99.34 kg

DRUGS (18)
  1. GARLIC. [Concomitant]
     Active Substance: GARLIC
  2. LEVOTHYROXINE [Concomitant]
     Active Substance: LEVOTHYROXINE
  3. FAMOTIDINE. [Concomitant]
     Active Substance: FAMOTIDINE
  4. COQ 10 [Concomitant]
     Active Substance: UBIDECARENONE
  5. BIOTIN [Concomitant]
     Active Substance: BIOTIN
  6. PANTOPRAZOLE [Concomitant]
     Active Substance: PANTOPRAZOLE SODIUM
  7. SERTARALINE HCL [Concomitant]
  8. CELECOXIB. [Suspect]
     Active Substance: CELECOXIB
     Indication: OSTEOARTHRITIS
     Dosage: 21
     Route: 048
  9. HYDROCODONE ACET [Concomitant]
  10. VITAMIN D [Concomitant]
     Active Substance: CHOLECALCIFEROL
  11. KRILL OIL JOINT CARE [Concomitant]
  12. PROBIOTIC [Concomitant]
     Active Substance: PROBIOTICS NOS
  13. CELECOXIB. [Concomitant]
     Active Substance: CELECOXIB
  14. BUTAL 50-ACET 325 -CAFF [Concomitant]
  15. MONTELUKAST SODIU [Concomitant]
  16. ALPRAZOLAM ODT [Concomitant]
  17. FLUTICASONE PROP [Concomitant]
  18. CHOLESTOFF [Concomitant]

REACTIONS (4)
  - Drug effect decreased [None]
  - Arthralgia [None]
  - Musculoskeletal pain [None]
  - Product substitution issue [None]
